FAERS Safety Report 10037188 (Version 1)
Quarter: 2014Q1

REPORT INFORMATION
  Report Type: Spontaneous
  Country: AU (occurrence: None)
  Receive Date: 20140324
  Receipt Date: 20140324
  Transmission Date: 20141002
  Serious: Yes (Death)
  Sender: FDA-Public Use
  Company Number: KAD201401-000054

PATIENT
  Age: 49 Year
  Sex: 0

DRUGS (1)
  1. RIBAVIRIN (RIBAVIRIN) [Suspect]
     Indication: RESPIRATORY SYNCYTIAL VIRUS INFECTION
     Dosage: 800 MG, FOUR TIMES A DAY (35 MG/KG), ORAL
     Route: 048

REACTIONS (3)
  - Herpes simplex [None]
  - Herpes simplex encephalitis [None]
  - Off label use [None]
